FAERS Safety Report 18723990 (Version 1)
Quarter: 2021Q1

REPORT INFORMATION
  Report Type: Spontaneous
  Country: FR (occurrence: FR)
  Receive Date: 20210111
  Receipt Date: 20210111
  Transmission Date: 20210419
  Serious: Yes (Hospitalization)
  Sender: FDA-Public Use
  Company Number: FR-TEVA-2021-FR-1866669

PATIENT
  Age: 66 Year
  Sex: Female
  Weight: 83 kg

DRUGS (5)
  1. LOSARTAN POTASSIQUE [Suspect]
     Active Substance: LOSARTAN POTASSIUM
     Indication: HYPERTENSION
     Dosage: 50 MG
     Route: 048
     Dates: end: 20201125
  2. INNOHEP [Suspect]
     Active Substance: TINZAPARIN SODIUM
     Indication: THROMBOSIS PROPHYLAXIS
     Dosage: 14000 IU
     Route: 058
     Dates: start: 202010, end: 20201125
  3. IBRANCE [Suspect]
     Active Substance: PALBOCICLIB
     Indication: BREAST CANCER METASTATIC
     Dosage: 2625 MG
     Route: 048
     Dates: start: 20201109, end: 20201124
  4. FASLODEX [Concomitant]
     Active Substance: FULVESTRANT
  5. ROSUVASTATINE [Concomitant]
     Active Substance: ROSUVASTATIN

REACTIONS (1)
  - Acute kidney injury [Recovered/Resolved]

NARRATIVE: CASE EVENT DATE: 20201124
